FAERS Safety Report 9903125 (Version 3)
Quarter: 2014Q1

REPORT INFORMATION
  Report Type: Report from Study
  Country: BR (occurrence: BR)
  Receive Date: 20140217
  Receipt Date: 20140327
  Transmission Date: 20141002
  Serious: Yes (Hospitalization, Other)
  Sender: FDA-Public Use
  Company Number: PHHY2014BR018906

PATIENT
  Sex: Male
  Weight: 63 kg

DRUGS (4)
  1. TEGRETOL [Suspect]
     Indication: EPILEPSY
     Dosage: 1 DF, DAILY
     Route: 048
  2. FRONTAL [Suspect]
     Dosage: UNK UKN, UNK
  3. LAMICTAL [Concomitant]
     Indication: EPILEPSY
     Dosage: 5 DF, DAILY
     Route: 048
  4. DEPAKOTE [Concomitant]
     Dosage: 2 DF, DAILY
     Route: 048

REACTIONS (3)
  - Fall [Recovered/Resolved]
  - Facial bones fracture [Recovered/Resolved]
  - Convulsion [Recovered/Resolved]
